FAERS Safety Report 8204912-2 (Version None)
Quarter: 2012Q1

REPORT INFORMATION
  Report Type: 
  Country: None (occurrence: None)
  Receive Date: 20120313
  Receipt Date: 20120306
  Transmission Date: 20120608
  Serious: No
  Sender: FDA-Public Use
  Company Number: US-BAYER-2012-023781

PATIENT
  Age: 72 Year
  Sex: Female
  Weight: 82 kg

DRUGS (4)
  1. AMLODIPINE BESYLATE [Concomitant]
  2. PRAVASTATIN [Concomitant]
  3. BISOPROLOL FUMARATE [Concomitant]
  4. ALEVE (CAPLET) [Suspect]
     Dosage: 2 U, QD
     Route: 048
     Dates: start: 20120228, end: 20120303

REACTIONS (2)
  - ORAL DISCOMFORT [None]
  - PARAESTHESIA ORAL [None]
